FAERS Safety Report 15682865 (Version 1)
Quarter: 2018Q4

REPORT INFORMATION
  Report Type: Spontaneous
  Country: US (occurrence: US)
  Receive Date: 20181203
  Receipt Date: 20181203
  Transmission Date: 20190205
  Serious: Yes (Other)
  Sender: FDA-Public Use
  Company Number: US-BAYER-2018-218948

PATIENT
  Age: 19 Year
  Sex: Female

DRUGS (1)
  1. KYLEENA [Suspect]
     Active Substance: LEVONORGESTREL
     Indication: POLYCYSTIC OVARIES
     Dosage: 17.5 MCG/24HR, CONT
     Route: 015
     Dates: start: 20181120

REACTIONS (7)
  - Post procedural haemorrhage [None]
  - Abdominal pain lower [None]
  - Product use in unapproved indication [None]
  - Vaginal haemorrhage [None]
  - Off label use [None]
  - Procedural pain [None]
  - Menstruation irregular [None]

NARRATIVE: CASE EVENT DATE: 20181120
